FAERS Safety Report 18506162 (Version 3)
Quarter: 2020Q4

REPORT INFORMATION
  Report Type: Spontaneous
  Country: US (occurrence: US)
  Receive Date: 20201116
  Receipt Date: 20201123
  Transmission Date: 20210114
  Serious: No
  Sender: FDA-Public Use
  Company Number: US-PFIZER INC-2020444086

PATIENT
  Age: 59 Year
  Sex: Female

DRUGS (1)
  1. XALKORI [Suspect]
     Active Substance: CRIZOTINIB
     Indication: LUNG NEOPLASM MALIGNANT
     Dosage: 250 MG, 2X/DAY [250 MG (1 DF), TWICE DAILY] (TAKE WITH OR WITHOUT FOOD, DO NOT CRUSH,CHEW, DISSOLVE
     Route: 048
     Dates: start: 202010

REACTIONS (3)
  - Constipation [Unknown]
  - Diarrhoea [Unknown]
  - Nausea [Recovering/Resolving]
